FAERS Safety Report 12076918 (Version 1)
Quarter: 2016Q1

REPORT INFORMATION
  Report Type: Spontaneous
  Country: FR (occurrence: FR)
  Receive Date: 20160215
  Receipt Date: 20160215
  Transmission Date: 20160526
  Serious: Yes (Hospitalization)
  Sender: FDA-Public Use
  Company Number: FR-009507513-1602FRA005570

PATIENT
  Age: 83 Year
  Sex: Female

DRUGS (2)
  1. TERCIAN [Suspect]
     Active Substance: CYAMEMAZINE
     Dosage: 10 DROPS, QD (ALSO REPORTED AS WHEN GETTING BED)
     Route: 048
     Dates: end: 20151104
  2. NORSET [Suspect]
     Active Substance: MIRTAZAPINE
     Dosage: 15 MG, QPM
     Route: 048

REACTIONS (1)
  - Haemorrhagic stroke [Recovered/Resolved]

NARRATIVE: CASE EVENT DATE: 20151104
